FAERS Safety Report 6996506-1 (Version None)
Quarter: 2010Q3

REPORT INFORMATION
  Report Type: 
  Country: None (occurrence: None)
  Receive Date: 20100918
  Receipt Date: 20090414
  Transmission Date: 20110219
  Serious: No
  Sender: FDA-Public Use
  Company Number: US-WYE-H08962709

PATIENT
  Sex: Female

DRUGS (7)
  1. EFFEXOR XR [Suspect]
     Indication: DEPRESSION
     Route: 048
     Dates: start: 19890101, end: 20040101
  2. EFFEXOR XR [Suspect]
     Dosage: ATTEMPTED TO TAPER
     Route: 048
     Dates: start: 20040101
  3. EFFEXOR XR [Suspect]
     Dosage: DECIDED TO REMAIN ON EFFEXOR XR - DOSE UNKNOWN
     Route: 048
     Dates: end: 20080101
  4. EFFEXOR XR [Suspect]
     Dosage: ATTEMPTED TO TAPER
     Route: 048
     Dates: start: 20080101
  5. EFFEXOR XR [Suspect]
     Route: 048
  6. DEPAKOTE [Concomitant]
  7. KLONOPIN [Concomitant]

REACTIONS (5)
  - ANXIETY [None]
  - COGNITIVE DISORDER [None]
  - DRUG WITHDRAWAL SYNDROME [None]
  - INSOMNIA [None]
  - PNEUMONIA [None]
